FAERS Safety Report 23707087 (Version 1)
Quarter: 2024Q2

REPORT INFORMATION
  Report Type: Report from Study
  Country: US (occurrence: None)
  Receive Date: 20240404
  Receipt Date: 20240404
  Transmission Date: 20240715
  Serious: Yes (Death)
  Sender: FDA-Public Use
  Company Number: 2023A034158

PATIENT
  Age: 20039 Day
  Sex: Female

DRUGS (1)
  1. TAGRISSO [Suspect]
     Active Substance: OSIMERTINIB
     Indication: Pain in extremity
     Route: 048
     Dates: start: 202212

REACTIONS (2)
  - Cardiac ventricular thrombosis [Fatal]
  - Off label use [Unknown]

NARRATIVE: CASE EVENT DATE: 20230125
